FAERS Safety Report 23530222 (Version 1)
Quarter: 2024Q1

REPORT INFORMATION
  Report Type: Spontaneous
  Country: US (occurrence: US)
  Receive Date: 20240216
  Receipt Date: 20240216
  Transmission Date: 20240410
  Serious: Yes (Hospitalization)
  Sender: FDA-Public Use
  Company Number: US-PADAGIS-2024PAD00236

PATIENT

DRUGS (16)
  1. MIDAZOLAM HYDROCHLORIDE [Suspect]
     Active Substance: MIDAZOLAM HYDROCHLORIDE
     Indication: Paraesthesia
     Dosage: UNK
     Route: 065
  2. MIDAZOLAM HYDROCHLORIDE [Suspect]
     Active Substance: MIDAZOLAM HYDROCHLORIDE
     Indication: Insomnia
  3. MIDAZOLAM HYDROCHLORIDE [Suspect]
     Active Substance: MIDAZOLAM HYDROCHLORIDE
     Indication: Hyperkinesia
  4. MIDAZOLAM HYDROCHLORIDE [Suspect]
     Active Substance: MIDAZOLAM HYDROCHLORIDE
     Indication: Abnormal behaviour
  5. RISPERIDONE [Suspect]
     Active Substance: RISPERIDONE
     Indication: Abnormal behaviour
     Dosage: UNK
     Route: 065
  6. RISPERIDONE [Suspect]
     Active Substance: RISPERIDONE
     Indication: Hyperkinesia
  7. RISPERIDONE [Suspect]
     Active Substance: RISPERIDONE
     Indication: Insomnia
  8. RISPERIDONE [Suspect]
     Active Substance: RISPERIDONE
     Indication: Paraesthesia
  9. DIAZEPAM [Suspect]
     Active Substance: DIAZEPAM
     Indication: Paraesthesia
     Dosage: UNK
     Route: 065
  10. DIAZEPAM [Suspect]
     Active Substance: DIAZEPAM
     Indication: Insomnia
  11. DIAZEPAM [Suspect]
     Active Substance: DIAZEPAM
     Indication: Hyperkinesia
  12. DIAZEPAM [Suspect]
     Active Substance: DIAZEPAM
     Indication: Abnormal behaviour
  13. DEXMEDETOMIDINE [Suspect]
     Active Substance: DEXMEDETOMIDINE
     Indication: Abnormal behaviour
     Dosage: UNK
     Route: 065
  14. DEXMEDETOMIDINE [Suspect]
     Active Substance: DEXMEDETOMIDINE
     Indication: Hyperkinesia
  15. DEXMEDETOMIDINE [Suspect]
     Active Substance: DEXMEDETOMIDINE
     Indication: Insomnia
  16. DEXMEDETOMIDINE [Suspect]
     Active Substance: DEXMEDETOMIDINE
     Indication: Paraesthesia

REACTIONS (6)
  - Sedation complication [Unknown]
  - Agitation [Recovering/Resolving]
  - Paraesthesia [Unknown]
  - Condition aggravated [Unknown]
  - Drug ineffective for unapproved indication [Unknown]
  - Product use issue [Unknown]
